FAERS Safety Report 5242922-8 (Version None)
Quarter: 2007Q1

REPORT INFORMATION
  Report Type: 
  Country: None (occurrence: None)
  Receive Date: 20070214
  Receipt Date: 20070201
  Transmission Date: 20070707
  Serious: Yes (Hospitalization)
  Sender: FDA-Public Use
  Company Number: 2007PV029376

PATIENT
  Age: 63 Year
  Sex: Female
  Weight: 97.0698 kg

DRUGS (7)
  1. BYETTA [Suspect]
     Indication: DIABETES MELLITUS NON-INSULIN-DEPENDENT
     Dosage: 10  MCG;BID;SC; 5MCG;BID;SC
     Route: 058
     Dates: start: 20060401, end: 20060501
  2. BYETTA [Suspect]
     Indication: DIABETES MELLITUS NON-INSULIN-DEPENDENT
     Dosage: 10  MCG;BID;SC; 5MCG;BID;SC
     Route: 058
     Dates: start: 20060501
  3. METFORMIN HCL [Concomitant]
  4. AMARYL [Concomitant]
  5. ADVAIR DISKUS 100/50 [Concomitant]
  6. ASPIRIN [Concomitant]
  7. VOLTAREN [Concomitant]

REACTIONS (4)
  - BLOOD GLUCOSE INCREASED [None]
  - CONDITION AGGRAVATED [None]
  - LUNG DISORDER [None]
  - THROMBOSIS [None]
